FAERS Safety Report 14551013 (Version 1)
Quarter: 2018Q1

REPORT INFORMATION
  Report Type: Spontaneous
  Country: US (occurrence: US)
  Receive Date: 20180220
  Receipt Date: 20180220
  Transmission Date: 20180509
  Serious: No
  Sender: FDA-Public Use
  Company Number: US-TEVA-794674USA

PATIENT
  Sex: Female

DRUGS (2)
  1. AMPHETAMINE W/DEXTROAMPHETAMINE [Suspect]
     Active Substance: AMPHETAMINE SULFATE\DEXTROAMPHETAMINE
     Indication: DISTURBANCE IN ATTENTION
  2. AMPHETAMINE W/DEXTROAMPHETAMINE [Suspect]
     Active Substance: AMPHETAMINE SULFATE\DEXTROAMPHETAMINE
     Indication: ASTHENIA
     Route: 065

REACTIONS (5)
  - Insomnia [Unknown]
  - Product use in unapproved indication [Unknown]
  - Drug diversion [Unknown]
  - Blood pressure increased [Unknown]
  - Mouth ulceration [Unknown]
